FAERS Safety Report 22054842 (Version 1)
Quarter: 2023Q1

REPORT INFORMATION
  Report Type: Spontaneous
  Country: US (occurrence: None)
  Receive Date: 20230302
  Receipt Date: 20230302
  Transmission Date: 20230417
  Serious: Yes (Hospitalization)
  Sender: FDA-Public Use
  Company Number: US-FARMAPROD-202302-0471

PATIENT
  Age: 68 Year
  Sex: Male
  Weight: 138.47 kg

DRUGS (10)
  1. OXERVATE [Suspect]
     Active Substance: CENEGERMIN-BKBJ
     Indication: Neurotrophic keratopathy
     Route: 047
     Dates: start: 20230130
  2. ERYTHROMYCIN [Concomitant]
     Active Substance: ERYTHROMYCIN
  3. INSULIN ASPART [Concomitant]
     Active Substance: INSULIN ASPART
     Dosage: VIAL
  4. DROXIDOPA [Concomitant]
     Active Substance: DROXIDOPA
  5. DOCUSATE SODIUM [Concomitant]
     Active Substance: DOCUSATE SODIUM
  6. ROSUVASTATIN CALCIUM [Concomitant]
     Active Substance: ROSUVASTATIN CALCIUM
  7. ASPIRIN [Concomitant]
     Active Substance: ASPIRIN
     Dosage: DELAYED RELEASE
  8. METOPROLOL SUCCINATE [Concomitant]
     Active Substance: METOPROLOL SUCCINATE
     Dosage: EXTENDED RELEASE 24 HOURS
  9. GABAPENTIN [Concomitant]
     Active Substance: GABAPENTIN
  10. TRADJENTA [Concomitant]
     Active Substance: LINAGLIPTIN

REACTIONS (2)
  - Renal disorder [Unknown]
  - Weight decreased [Unknown]

NARRATIVE: CASE EVENT DATE: 20230211
